FAERS Safety Report 7761412-1 (Version None)
Quarter: 2011Q3

REPORT INFORMATION
  Report Type: 
  Country: None (occurrence: None)
  Receive Date: 20110920
  Receipt Date: 20110909
  Transmission Date: 20111222
  Serious: Yes (Other)
  Sender: FDA-Public Use
  Company Number: US-UCBSA-019779

PATIENT
  Sex: Female

DRUGS (5)
  1. KEPPRA [Suspect]
     Indication: EPILEPSY
     Dates: end: 20100101
  2. KEPPRA [Suspect]
     Dates: start: 20100101
  3. CVS FOLIC ACID [Concomitant]
     Indication: SUPPLEMENTATION THERAPY
  4. FROVA [Concomitant]
  5. PRENATAL VITAMINS [Concomitant]
     Indication: PREGNANCY
     Dosage: 1 PILL
     Route: 048

REACTIONS (8)
  - AMNIOTIC FLUID VOLUME DECREASED [None]
  - CONVULSION [None]
  - URINARY TRACT INFECTION [None]
  - FALL [None]
  - MECONIUM IN AMNIOTIC FLUID [None]
  - PREGNANCY [None]
  - CAESAREAN SECTION [None]
  - OVARIAN CYST [None]
